FAERS Safety Report 5580992-8 (Version None)
Quarter: 2007Q4

REPORT INFORMATION
  Report Type: 
  Country: None (occurrence: None)
  Receive Date: 20071227
  Receipt Date: 20071218
  Transmission Date: 20080405
  Serious: Yes (Other)
  Sender: FDA-Public Use
  Company Number: US-JNJFOC-20071001328

PATIENT
  Age: 72 Year
  Sex: Male
  Weight: 93.441 kg

DRUGS (13)
  1. DACOGEN [Suspect]
     Indication: ACUTE MYELOID LEUKAEMIA
     Dosage: 40 MG, INTRAVENOUS
     Route: 042
     Dates: start: 20070701
  2. ARANESP [Concomitant]
  3. DECADRON [Concomitant]
  4. TENORMIN (ATENOLOL) UNSPECIFIED [Concomitant]
  5. VASOTEC (ENALAPRIL MALEATE) UNKNOWN [Concomitant]
  6. ALLOPURINOL (ALLOPURINOL) UNSPECIFIED [Concomitant]
  7. ATORVASTATIN (ATORVASTATIN) UNSPECIFIED [Concomitant]
  8. COUMADIN [Concomitant]
  9. FLOMAX (TAMSULOSIN HYDROCHLORIDE) UNSPECIFIED [Concomitant]
  10. FLOMAX (TAMSULOSIN HYDROCHLORIDE) UNSPECIFIED [Concomitant]
  11. PROTONIX (PANTOPRAZOLE) UNSPECIFIED [Concomitant]
  12. MULTIVITAMINS (MULTIVITAMINS) UNSPECIFIED [Concomitant]
  13. ANZEMET (DOLASETRON MESILATE) UNSPECIFIED [Concomitant]

REACTIONS (4)
  - BLOOD GLUCOSE INCREASED [None]
  - PRURITUS [None]
  - RASH VESICULAR [None]
  - SCAB [None]
